FAERS Safety Report 4702463-0 (Version None)
Quarter: 2005Q2

REPORT INFORMATION
  Report Type: 
  Country: None (occurrence: None)
  Receive Date: 20050629
  Receipt Date: 20050517
  Transmission Date: 20051028
  Serious: Yes (Death)
  Sender: FDA-Public Use
  Company Number: JP-BRISTOL-MYERS SQUIBB COMPANY-12972139

PATIENT
  Age: 63 Year
  Sex: Male

DRUGS (14)
  1. TAXOL [Suspect]
     Indication: LUNG ADENOCARCINOMA
     Route: 041
     Dates: start: 20050301, end: 20050301
  2. PARAPLATIN [Suspect]
     Indication: LUNG ADENOCARCINOMA
     Route: 041
     Dates: start: 20050301, end: 20050301
  3. RADIATION THERAPY [Concomitant]
     Indication: METASTASES TO BONE
     Dates: start: 20050128, end: 20050210
  4. MS CONTIN [Concomitant]
     Route: 048
     Dates: start: 20050226, end: 20050301
  5. RESTAMIN [Concomitant]
     Route: 048
     Dates: start: 20050201, end: 20050301
  6. GASTER [Concomitant]
     Route: 041
     Dates: start: 20050201, end: 20050301
  7. KYTRIL [Concomitant]
     Route: 041
     Dates: start: 20050201, end: 20050301
  8. VOLTAREN [Concomitant]
     Route: 048
     Dates: start: 20050127, end: 20050202
  9. TERNELIN [Concomitant]
     Route: 048
     Dates: start: 20050127, end: 20050306
  10. CYTOTEC [Concomitant]
     Route: 048
     Dates: start: 20050127, end: 20050306
  11. DECADRON [Concomitant]
     Route: 048
     Dates: start: 20050201, end: 20050305
  12. NOVAMIN [Concomitant]
     Route: 048
     Dates: start: 20050201, end: 20050306
  13. VOLTAREN-XR [Concomitant]
     Route: 048
     Dates: start: 20050203, end: 20050225
  14. DUROTEP [Concomitant]
     Route: 062
     Dates: start: 20050301, end: 20050306

REACTIONS (2)
  - INTESTINAL PERFORATION [None]
  - PERITONITIS [None]
